FAERS Safety Report 5135523-3 (Version None)
Quarter: 2006Q4

REPORT INFORMATION
  Report Type: 
  Country: None (occurrence: None)
  Receive Date: 20061026
  Receipt Date: 20060308
  Transmission Date: 20070319
  Serious: Yes (Other)
  Sender: FDA-Public Use
  Company Number: US-ELI_LILLY_AND_COMPANY-US200606002228

PATIENT
  Age: 47 Year
  Sex: Female
  Weight: 108.39 kg

DRUGS (3)
  1. ZYPREXA [Suspect]
     Dosage: 20 MG, UNKNOWN
     Dates: start: 20011201, end: 20050601
  2. ABILIFY [Concomitant]
     Dosage: UNK, UNKNOWN
     Dates: start: 20050101
  3. SEROQUEL [Concomitant]
     Dosage: UNK, UNKNOWN
     Dates: start: 20060201

REACTIONS (7)
  - DIABETES MELLITUS [None]
  - KETONURIA [None]
  - LACTIC ACIDOSIS [None]
  - METABOLIC ACIDOSIS [None]
  - METABOLIC DISORDER [None]
  - METABOLIC SYNDROME [None]
  - OBESITY [None]
